FAERS Safety Report 8860677 (Version 1)
Quarter: 2012Q4

REPORT INFORMATION
  Report Type: Report from Study
  Country: US (occurrence: US)
  Receive Date: 20121025
  Receipt Date: 20121025
  Transmission Date: 20130627
  Serious: Yes (Disabling, Other)
  Sender: FDA-Public Use
  Company Number: US-US-EMD SERONO, INC.-7168747

PATIENT
  Sex: Female

DRUGS (1)
  1. REBIF [Suspect]
     Indication: PRODUCT USED FOR UNKNOWN INDICATION
     Route: 058
     Dates: start: 20060327

REACTIONS (5)
  - Arterial stent insertion [Unknown]
  - Abasia [Not Recovered/Not Resolved]
  - Convulsion [Unknown]
  - Peroneal nerve palsy [Not Recovered/Not Resolved]
  - Fall [Unknown]
